FAERS Safety Report 26146492 (Version 1)
Quarter: 2025Q4

REPORT INFORMATION
  Report Type: Report from Study
  Country: CO (occurrence: CO)
  Receive Date: 20251211
  Receipt Date: 20251211
  Transmission Date: 20260118
  Serious: Yes (Hospitalization)
  Sender: ABBVIE
  Company Number: CO-ABBVIE-6581156

PATIENT
  Age: 67 Year
  Sex: Male
  Weight: 90 kg

DRUGS (1)
  1. SKYRIZI [Suspect]
     Active Substance: RISANKIZUMAB-RZAA
     Indication: Psoriasis
     Dosage: SKYRIZI PREFILLED SYRINGE 150 MG, SOLUTION FOR INJECTION IN PRE-FILLED SYRINGE
     Route: 058
     Dates: start: 20220607, end: 20250730

REACTIONS (3)
  - Fluid retention [Recovering/Resolving]
  - Dysuria [Recovering/Resolving]
  - Urinary tract infection bacterial [Recovering/Resolving]

NARRATIVE: CASE EVENT DATE: 20251001
